FAERS Safety Report 25244873 (Version 2)
Quarter: 2025Q3

REPORT INFORMATION
  Report Type: Spontaneous
  Country: US (occurrence: US)
  Receive Date: 20250428
  Receipt Date: 20250822
  Transmission Date: 20251020
  Serious: Yes (Other)
  Sender: PFIZER
  Company Number: US-PFIZER INC-PV202500048782

PATIENT
  Age: 54 Year
  Sex: Female

DRUGS (1)
  1. TESTOSTERONE CYPIONATE [Suspect]
     Active Substance: TESTOSTERONE CYPIONATE

REACTIONS (4)
  - Polycythaemia [Recovering/Resolving]
  - Retinal artery occlusion [Recovering/Resolving]
  - Cerebral infarction [Recovering/Resolving]
  - Off label use [Unknown]
